FAERS Safety Report 7395415-6 (Version None)
Quarter: 2011Q2

REPORT INFORMATION
  Report Type: 
  Country: None (occurrence: None)
  Receive Date: 20110405
  Receipt Date: 20101006
  Transmission Date: 20111010
  Serious: Yes (Hospitalization)
  Sender: FDA-Public Use
  Company Number: US-BAYER-200944025NA

PATIENT
  Sex: Female
  Weight: 90.703 kg

DRUGS (3)
  1. YASMIN [Suspect]
     Indication: ACNE
     Dosage: 1 TABLET PER DAY
     Dates: start: 20041001, end: 20080101
  2. OCELLA [Suspect]
     Indication: ACNE
     Dosage: 1 TABLET PER DAY
     Dates: start: 20090201, end: 20091101
  3. YAZ [Suspect]
     Dosage: UNK
     Dates: start: 20090201, end: 20091115

REACTIONS (16)
  - CHOLECYSTITIS CHRONIC [None]
  - CHOLESTEROSIS [None]
  - PROCTITIS [None]
  - ABDOMINAL PAIN UPPER [None]
  - DYSPEPSIA [None]
  - WEIGHT INCREASED [None]
  - CHOLELITHIASIS [None]
  - PROCEDURAL PAIN [None]
  - DIARRHOEA [None]
  - ABDOMINAL DISTENSION [None]
  - VOMITING [None]
  - CHILLS [None]
  - GASTROOESOPHAGEAL REFLUX DISEASE [None]
  - PAIN [None]
  - NAUSEA [None]
  - MEDICAL DIET [None]
